FAERS Safety Report 8929287 (Version 2)
Quarter: 2013Q1

REPORT INFORMATION
  Report Type: Spontaneous
  Country: IT (occurrence: None)
  Receive Date: 20121119
  Receipt Date: 20121128
  Transmission Date: 20140127
  Serious: Yes (Hospitalization)
  Sender: FDA-Public Use
  Company Number: AUR-APL-2012-04856

PATIENT
  Age: 34 Year
  Sex: Male

DRUGS (6)
  1. OLANZAPINE (OLANZAPINE) [Suspect]
     Indication: MENTAL DISORDER
     Route: 048
     Dates: start: 20121018, end: 20121018
  2. TRIATEC (RAMIPRIL) [Suspect]
     Indication: HYPERTENSION
     Route: 048
     Dates: start: 20121018, end: 20121018
  3. DEPAKIN [Suspect]
     Indication: MENTAL DISORDER
     Route: 048
     Dates: start: 20121018, end: 20121018
  4. LARGACTIL [Suspect]
     Indication: MENTAL DISORDER
     Route: 048
     Dates: start: 20121018, end: 20121018
  5. TEGRETOL [Suspect]
     Indication: MENTAL DISORDER
     Route: 048
     Dates: start: 20121018, end: 20121018
  6. HALDOL DECANOATE [Suspect]
     Indication: MENTAL DISORDER
     Route: 048
     Dates: start: 20121018, end: 20121018

REACTIONS (1)
  - Intentional self-injury [None]
